FAERS Safety Report 7047904-1 (Version None)
Quarter: 2010Q4

REPORT INFORMATION
  Report Type: 
  Country: None (occurrence: None)
  Receive Date: 20101015
  Receipt Date: 20101005
  Transmission Date: 20110411
  Serious: Yes (Hospitalization)
  Sender: FDA-Public Use
  Company Number: DE-ABBOTT-10P-062-0656662-00

PATIENT
  Age: 71 Year
  Sex: Female

DRUGS (26)
  1. CLARITHROMYCIN [Suspect]
     Indication: PNEUMONIA
     Route: 042
     Dates: start: 20100521, end: 20100523
  2. ROCEPHIN [Suspect]
     Indication: PNEUMONIA
     Dates: start: 20100521, end: 20100523
  3. PIPERACILLIN AND TAZOBACTAM [Suspect]
     Indication: PNEUMONIA
     Dates: start: 20100522, end: 20100524
  4. PIPERACILLIN AND TAZOBACTAM [Concomitant]
     Route: 042
     Dates: start: 20100522, end: 20100524
  5. CIPRO [Concomitant]
     Indication: PNEUMONIA
     Route: 048
     Dates: start: 20100525, end: 20100604
  6. STEROFUNDIN [Concomitant]
     Indication: PRODUCT USED FOR UNKNOWN INDICATION
     Route: 042
     Dates: start: 20100613, end: 20100616
  7. PEROCUR [Concomitant]
     Indication: PRODUCT USED FOR UNKNOWN INDICATION
     Dates: start: 20100616, end: 20100628
  8. VAGIMID [Concomitant]
     Indication: PRODUCT USED FOR UNKNOWN INDICATION
  9. FERROUS SULFATE TAB [Concomitant]
     Indication: PRODUCT USED FOR UNKNOWN INDICATION
     Dates: start: 20100624, end: 20100628
  10. STEROFUNDIN [Concomitant]
     Dates: start: 20100622, end: 20100624
  11. DEXTROSE 5% [Concomitant]
     Indication: PRODUCT USED FOR UNKNOWN INDICATION
     Dates: start: 20100622, end: 20100623
  12. GLUCOSE [Concomitant]
     Indication: PRODUCT USED FOR UNKNOWN INDICATION
     Dates: start: 20100624, end: 20100627
  13. SODIUM CHLORIDE 0.9% [Concomitant]
     Indication: PRODUCT USED FOR UNKNOWN INDICATION
     Dates: start: 20100624, end: 20100625
  14. GABAPENTIN [Concomitant]
     Indication: POLYNEUROPATHY
     Route: 048
  15. MAGNETRANS [Concomitant]
     Indication: MAGNESIUM DEFICIENCY
     Dates: start: 20100522, end: 20100524
  16. SIMVASTATIN [Concomitant]
     Indication: ISCHAEMIC HEART DISEASE PROPHYLAXIS
     Route: 048
  17. MOXONIDINE [Concomitant]
     Indication: HYPERTENSION
     Dosage: BID, 1/2 TO 1 TABLET
     Route: 048
  18. EXFORGE 10/160 (100 MG AMLODIPINE/160 MG VALSARTAN) [Concomitant]
     Indication: HYPERTENSION
     Dosage: 100/160 MG
     Route: 048
  19. RASILEZ [Concomitant]
     Indication: PRODUCT USED FOR UNKNOWN INDICATION
     Route: 048
     Dates: start: 20100501
  20. QUERTO [Concomitant]
     Indication: PNEUMONIA
     Route: 048
     Dates: start: 20100501
  21. TOREM [Concomitant]
     Indication: HYPERTENSION
     Route: 048
  22. ALDACTONE [Concomitant]
     Indication: CARDIAC FAILURE
     Route: 048
  23. EUTHYROX [Concomitant]
     Indication: HYPOTHYROIDISM
     Route: 048
  24. HUMALOG [Concomitant]
     Indication: TYPE 2 DIABETES MELLITUS
     Dosage: 18 IU; 12IU; 16IU
     Route: 058
  25. LEVEMIR [Concomitant]
     Indication: TYPE 2 DIABETES MELLITUS
     Route: 058
  26. FALITHROM [Concomitant]
     Indication: ATRIAL FIBRILLATION
     Route: 048

REACTIONS (4)
  - ACUTE PRERENAL FAILURE [None]
  - BLOOD IRON DECREASED [None]
  - CLOSTRIDIUM DIFFICILE COLITIS [None]
  - ENTEROCOLITIS INFECTIOUS [None]
